FAERS Safety Report 8809721 (Version 1)
Quarter: 2012Q4

REPORT INFORMATION
  Report Type: Report from Study
  Country: JP (occurrence: JP)
  Receive Date: 20120926
  Receipt Date: 20120926
  Transmission Date: 20130627
  Serious: Yes (Hospitalization, Other)
  Sender: FDA-Public Use
  Company Number: JP-VERTEX PHARMACEUTICAL INC.-AE-2012-005200

PATIENT
  Age: 56 Year
  Sex: Male

DRUGS (11)
  1. VX-950 [Suspect]
     Indication: HEPATITIS C
     Dosage: 2250 mg, qd
     Route: 048
     Dates: start: 20120222, end: 20120225
  2. VX-950 [Suspect]
     Dosage: 1500 mg, qd
     Route: 048
     Dates: start: 20120226, end: 20120313
  3. VX-950 [Suspect]
     Dosage: 1000 mg, qd
     Route: 048
     Dates: start: 20120314, end: 20120501
  4. PEGINTERFERON ALFA-2B [Concomitant]
     Dosage: 0.75 UNK, UNK
     Route: 058
     Dates: start: 20120222, end: 20120501
  5. RIBAVIRIN [Concomitant]
     Dosage: 200 mg, qd
     Route: 048
     Dates: start: 20120222, end: 20120501
  6. URSO                               /00465701/ [Concomitant]
     Dosage: 300 mg, qd
     Route: 048
  7. LASIX                              /00032601/ [Concomitant]
     Dosage: 20 mg, qd
     Route: 048
  8. CELLCEPT                           /01275102/ [Concomitant]
     Dosage: 1500 mg, qd
     Route: 048
  9. NEORAL [Concomitant]
     Dosage: 10 mg, qd
     Route: 048
  10. NORVASC [Concomitant]
     Dosage: 10 mg, qd
     Route: 048
  11. ALDACTONE A [Concomitant]
     Dosage: 25 mg, qd
     Route: 048

REACTIONS (2)
  - Renal impairment [Not Recovered/Not Resolved]
  - Malaise [Recovered/Resolved]
